FAERS Safety Report 8294589 (Version 3)
Quarter: 2013Q2

REPORT INFORMATION
  Report Type: Report from Study
  Country: BR (occurrence: BR)
  Receive Date: 20111216
  Receipt Date: 20130430
  Transmission Date: 20140414
  Serious: Yes (Other)
  Sender: FDA-Public Use
  Company Number: PHHY2011BR097694

PATIENT
  Age: 39 Year
  Sex: Female

DRUGS (5)
  1. SANDOSTATIN LAR [Suspect]
     Indication: PITUITARY TUMOUR
     Dosage: UNK UKN (1APPLICATION), FOR MONTH
     Route: 030
     Dates: start: 20110422
  2. SANDOSTATIN LAR [Suspect]
     Dosage: 20 MG, MONTHLY
     Route: 030
     Dates: start: 201105, end: 20110902
  3. SANDOSTATIN LAR [Suspect]
     Dosage: 20 MG, MONTHLY
     Route: 030
     Dates: end: 20120902
  4. PREDNISONE [Concomitant]
     Dosage: 1 DF (5 MG), DAILY
     Route: 048
     Dates: start: 201110
  5. PURAN T4 [Concomitant]
     Indication: THYROID DISORDER
     Dosage: 1 DF (100 MG), DAILY
     Dates: start: 20130424

REACTIONS (10)
  - Syphilis [Unknown]
  - Diabetes insipidus [Unknown]
  - Amenorrhoea [Not Recovered/Not Resolved]
  - Hormone level abnormal [Not Recovered/Not Resolved]
  - Hyposmia [Unknown]
  - Hypoacusis [Unknown]
  - Blood cholesterol increased [Unknown]
  - Anosmia [Not Recovered/Not Resolved]
  - Hearing impaired [Not Recovered/Not Resolved]
  - Visual impairment [Not Recovered/Not Resolved]
